FAERS Safety Report 8157218-4 (Version None)
Quarter: 2012Q1

REPORT INFORMATION
  Report Type: 
  Country: None (occurrence: None)
  Receive Date: 20120222
  Receipt Date: 20120222
  Transmission Date: 20120608
  Serious: No
  Sender: FDA-Public Use
  Company Number: None

PATIENT
  Sex: Female
  Weight: 68.946 kg

DRUGS (1)
  1. LOSARTAN (GENERIC) [Suspect]
     Indication: HYPERTENSION
     Route: 048
     Dates: start: 20110919, end: 20120220

REACTIONS (3)
  - DIARRHOEA [None]
  - NAUSEA [None]
  - PALPITATIONS [None]
